FAERS Safety Report 4636307-2 (Version None)
Quarter: 2005Q2

REPORT INFORMATION
  Report Type: 
  Country: None (occurrence: None)
  Receive Date: 20050415
  Receipt Date: 20040813
  Transmission Date: 20051028
  Serious: No
  Sender: FDA-Public Use
  Company Number: US-BRISTOL-MYERS SQUIBB COMPANY-12676508

PATIENT
  Age: 35 Year
  Sex: Female

DRUGS (7)
  1. CARBOPLATIN [Suspect]
     Indication: OVARIAN CANCER
     Dosage: AUC 6 3M56343 EXP MAY-2005/3M60994 EXP JUN-2005
     Route: 042
     Dates: start: 20040621, end: 20040621
  2. PACLITAXEL [Concomitant]
     Indication: OVARIAN CANCER
     Route: 042
     Dates: start: 20040621, end: 20040621
  3. GRANISETRON [Concomitant]
     Indication: PREMEDICATION
     Route: 042
     Dates: start: 20040621, end: 20040621
  4. DEXAMETHASONE [Concomitant]
     Indication: PREMEDICATION
     Dosage: 20 MG ORALLY 12 HOURS PRIOR TO CHEMO
     Route: 040
     Dates: start: 20040621, end: 20040621
  5. FAMOTIDINE [Concomitant]
     Indication: PREMEDICATION
     Route: 040
     Dates: start: 20040621, end: 20040621
  6. DIPHENHYDRAMINE HCL [Concomitant]
     Indication: PREMEDICATION
     Dates: start: 20040621, end: 20040621
  7. APREPITANT [Concomitant]
     Dosage: 30 MINUTES PRIOR TO CHEMO
     Route: 048
     Dates: start: 20040621, end: 20040621

REACTIONS (2)
  - NAUSEA [None]
  - RASH [None]
